FAERS Safety Report 23869444 (Version 1)
Quarter: 2024Q2

REPORT INFORMATION
  Report Type: Spontaneous
  Country: DE (occurrence: DE)
  Receive Date: 20240517
  Receipt Date: 20240517
  Transmission Date: 20240716
  Serious: Yes (Hospitalization, Other)
  Sender: FDA-Public Use
  Company Number: None

PATIENT
  Age: 92 Year
  Sex: Male

DRUGS (9)
  1. SPIRONOLACTONE [Suspect]
     Active Substance: SPIRONOLACTONE
     Indication: Product used for unknown indication
     Dosage: 1-0-0
     Route: 048
     Dates: end: 20240407
  2. AMLODIPINE [Concomitant]
     Active Substance: AMLODIPINE BESYLATE
     Indication: Product used for unknown indication
     Dosage: 1-0-1;BEEN TAKING IT FOR AT LEAST 3 MONTHS, PROBABLY SIGNIFICANTLY LONGER
     Route: 048
     Dates: end: 20240409
  3. ELIQUIS [Concomitant]
     Active Substance: APIXABAN
     Indication: Product used for unknown indication
     Dosage: 1-0-1 TAKING IT FOR AT LEAST 3 MONTHS, PROBABLY SIGNIFICANTLY LONGER (YEARS)
     Route: 048
     Dates: end: 20240409
  4. ATORVASTATIN [Concomitant]
     Active Substance: ATORVASTATIN
     Indication: Product used for unknown indication
     Dosage: 0-0-1; BEEN TAKING IT FOR AT LEAST 3 MONTHS, PROBABLY SIGNIFICANTLY LONGER
     Route: 048
     Dates: end: 20240408
  5. TAMSULOSIN [Concomitant]
     Active Substance: TAMSULOSIN
     Indication: Product used for unknown indication
     Dosage: 0-0-1;BEEN TAKING IT FOR AT LEAST 3 MONTHS, PROBABLY SIGNIFICANTLY LONGER
     Route: 048
     Dates: end: 20240408
  6. PREGABALIN [Concomitant]
     Active Substance: PREGABALIN
     Indication: Product used for unknown indication
     Dosage: 0-0-1; BEEN TAKING IT FOR AT LEAST 3 MONTHS, PROBABLY SIGNIFICANTLY LONGER
     Route: 048
     Dates: end: 20240408
  7. PANTOPRAZOLE [Concomitant]
     Active Substance: PANTOPRAZOLE
     Indication: Product used for unknown indication
     Dosage: 1-0-0; BEEN TAKING IT FOR AT LEAST 3 MONTHS, PROBABLY SIGNIFICANTLY LONGER
     Route: 048
     Dates: end: 20240409
  8. INSULIN LISPRO [Concomitant]
     Active Substance: INSULIN LISPRO
     Indication: Product used for unknown indication
     Dosage: 1-1-1-1
     Route: 058
  9. PIPERACILLIN SODIUM\TAZOBACTAM SODIUM [Concomitant]
     Active Substance: PIPERACILLIN SODIUM\TAZOBACTAM SODIUM
     Indication: Infection
     Dosage: 1-1-1
     Route: 042
     Dates: start: 20240403, end: 20240409

REACTIONS (2)
  - Neutropenia [Not Recovered/Not Resolved]
  - Agranulocytosis [Not Recovered/Not Resolved]

NARRATIVE: CASE EVENT DATE: 20240409
